FAERS Safety Report 5018311-8 (Version None)
Quarter: 2006Q2

REPORT INFORMATION
  Report Type: 
  Country: None (occurrence: None)
  Receive Date: 20060530
  Receipt Date: 20060522
  Transmission Date: 20061013
  Serious: Yes (Hospitalization)
  Sender: FDA-Public Use
  Company Number: 2005134889

PATIENT
  Age: 39 Year
  Sex: Male
  Weight: 140 kg

DRUGS (5)
  1. ZELDOX                         (ZIPRASIDONE) [Suspect]
     Indication: SCHIZOPHRENIA
     Dosage: 80 MG (80 MG, 1 IN 1 D), ORAL
     Route: 048
     Dates: start: 20041213
  2. ENAP         (ENALAPRIL) [Concomitant]
  3. EFECTIN               (VENLAFAXINE HYDROCHLORIDE) [Concomitant]
     Indication: SCHIZOPHRENIA
     Dosage: 80 MG (80 MG, 1 IN 1 D), ORAL
     Route: 048
     Dates: start: 20041213
  4. ENAP (ENALAPRIL) [Concomitant]
  5. EFECTIN       (VENLAFAXINE HYDROCHLORIDE) [Concomitant]

REACTIONS (2)
  - CONTRAINDICATION TO MEDICAL TREATMENT [None]
  - MYOCARDIAL INFARCTION [None]
